FAERS Safety Report 7556198-X (Version None)
Quarter: 2011Q2

REPORT INFORMATION
  Report Type: 
  Country: None (occurrence: None)
  Receive Date: 20110620
  Receipt Date: 20090709
  Transmission Date: 20111010
  Serious: No
  Sender: FDA-Public Use
  Company Number: 2009BI021350

PATIENT
  Age: 51 Year
  Sex: Female

DRUGS (2)
  1. TYSABRI [Suspect]
     Indication: MULTIPLE SCLEROSIS
     Route: 042
     Dates: start: 20090316
  2. AVONEX [Concomitant]
     Indication: MULTIPLE SCLEROSIS
     Route: 030
     Dates: start: 20000830

REACTIONS (8)
  - FATIGUE [None]
  - MALAISE [None]
  - DIARRHOEA [None]
  - VOMITING [None]
  - HEADACHE [None]
  - ABDOMINAL DISCOMFORT [None]
  - VASOCONSTRICTION [None]
  - PAIN IN EXTREMITY [None]
